FAERS Safety Report 7693186-7 (Version None)
Quarter: 2011Q3

REPORT INFORMATION
  Report Type: 
  Country: None (occurrence: None)
  Receive Date: 20110819
  Receipt Date: 20110810
  Transmission Date: 20111222
  Serious: Yes (Other)
  Sender: FDA-Public Use
  Company Number: BR-BAYER-2011-071436

PATIENT
  Age: 30 Year
  Sex: Female
  Weight: 61 kg

DRUGS (1)
  1. YASMIN [Suspect]
     Indication: CONTRACEPTION
     Dosage: UNK
     Route: 048
     Dates: start: 20110806

REACTIONS (4)
  - TREMOR [None]
  - OROPHARYNGEAL BLISTERING [None]
  - TONGUE BLISTERING [None]
  - BURNING SENSATION [None]
